FAERS Safety Report 10174745 (Version 1)
Quarter: 2014Q2

REPORT INFORMATION
  Report Type: Spontaneous
  Country: US (occurrence: None)
  Receive Date: 20140416
  Receipt Date: 20140416
  Transmission Date: 20141212
  Serious: Yes (Hospitalization)
  Sender: FDA-Public Use
  Company Number: 163-POMAL-13115252

PATIENT
  Age: 64 Year
  Sex: Male
  Weight: 85 kg

DRUGS (17)
  1. POMALYST (POMALIDOMIDE) (4 MILLIGRAM, CAPSULES) [Suspect]
     Indication: PLASMA CELL MYELOMA
     Route: 048
     Dates: start: 201304
  2. ACYCLOVIR (ACICLOVIR) (ACICLOVIR) [Concomitant]
  3. ATORVASTATIN (ATORVASTATIN) [Concomitant]
  4. AZITHROMYCIN (AZITHROMYCIN) [Concomitant]
  5. CHLORHEXIDINE GLUCONATE (CHLORHEXIDINE GLUCONATE) [Concomitant]
  6. CHOLECALCIFEROL (COLECALCIFEROL) [Concomitant]
  7. DEXAMETHASONE (DEXAMETHASONE) [Concomitant]
  8. LORAZEPAM (LORAZEPAM) [Concomitant]
  9. OMEPRAZOLE (OMEPRAZOLE) [Concomitant]
  10. ONDANSETRON (ONDANSETRON) [Concomitant]
  11. PREDNISONE (PREDNISONE) [Concomitant]
  12. PROCHLORPERAZINE (PROCLORPERAZINE) [Concomitant]
  13. TAMSULOSIN (TAMSULOSIN) [Concomitant]
  14. TESTOSTERONE (TESTOSTERONE) [Concomitant]
  15. TRAZODONE (TRAZODONE) [Concomitant]
  16. ZOLPIDEM (ZOLPIDEM) [Concomitant]
  17. MORPHINE SULFATE (MORPHINE SULFATE) (INJECTION) [Concomitant]

REACTIONS (2)
  - Pneumonia [None]
  - Sepsis [None]
